FAERS Safety Report 11169645 (Version 6)
Quarter: 2015Q2

REPORT INFORMATION
  Report Type: Spontaneous
  Country: KR (occurrence: KR)
  Receive Date: 20150605
  Receipt Date: 20150622
  Transmission Date: 20150821
  Serious: Yes (Hospitalization)
  Sender: FDA-Public Use
  Company Number: PHHY2015KR066018

PATIENT
  Age: 73 Year
  Sex: Male

DRUGS (5)
  1. ACICLOVIR [Suspect]
     Active Substance: ACYCLOVIR
     Indication: KERATITIS
     Dosage: 10 MG/KG, TID
     Route: 042
  2. PREDNISOLONE. [Suspect]
     Active Substance: PREDNISOLONE
     Indication: IRIDOCYCLITIS
  3. ACICLOVIR [Suspect]
     Active Substance: ACYCLOVIR
     Indication: IRIDOCYCLITIS
  4. FLUORESCEIN SODIUM. [Suspect]
     Active Substance: FLUORESCEIN SODIUM
     Indication: ANGIOGRAM RETINA
     Route: 065
  5. PREDNISOLONE. [Suspect]
     Active Substance: PREDNISOLONE
     Indication: KERATITIS
     Dosage: 40 MG, UNK
     Route: 048

REACTIONS (3)
  - Drug ineffective [Unknown]
  - Retinal artery stenosis [Not Recovered/Not Resolved]
  - Optic atrophy [Not Recovered/Not Resolved]
